FAERS Safety Report 9500873 (Version 1)
Quarter: 2013Q1

REPORT INFORMATION
  Report Type: Spontaneous
  Country: US (occurrence: None)
  Receive Date: 20130107
  Receipt Date: 20130107
  Transmission Date: 20140127
  Serious: No
  Sender: FDA-Public Use
  Company Number: PHEH2012US017399

PATIENT
  Sex: Female
  Weight: 63.9 kg

DRUGS (1)
  1. GILENYA (FTY)CAPSULE, 0.5MG [Suspect]
     Indication: MULTIPLE SCLEROSIS
     Route: 048
     Dates: start: 20120709

REACTIONS (4)
  - Acne [None]
  - Rash [None]
  - Diarrhoea [None]
  - Lymphocyte count decreased [None]
